FAERS Safety Report 23756868 (Version 3)
Quarter: 2024Q2

REPORT INFORMATION
  Report Type: Spontaneous
  Country: FR (occurrence: FR)
  Receive Date: 20240418
  Receipt Date: 20240602
  Transmission Date: 20240715
  Serious: No
  Sender: FDA-Public Use
  Company Number: FR-JNJFOC-20240423271

PATIENT
  Age: 63 Year
  Sex: Male

DRUGS (2)
  1. STELARA [Suspect]
     Active Substance: USTEKINUMAB
     Indication: Product used for unknown indication
     Route: 058
  2. STELARA [Suspect]
     Active Substance: USTEKINUMAB

REACTIONS (2)
  - Device deployment issue [Unknown]
  - Incorrect dose administered by device [Unknown]
